FAERS Safety Report 7656554-5 (Version None)
Quarter: 2011Q3

REPORT INFORMATION
  Report Type: 
  Country: None (occurrence: None)
  Receive Date: 20110804
  Receipt Date: 20110125
  Transmission Date: 20111222
  Serious: No
  Sender: FDA-Public Use
  Company Number: US-BAUSCH-2011BL000539

PATIENT
  Age: 50 Year
  Sex: Male

DRUGS (2)
  1. SOOTHE XP [Concomitant]
  2. OPCON-A [Suspect]
     Indication: EYE ALLERGY
     Route: 047
     Dates: start: 20110104, end: 20110124

REACTIONS (1)
  - INSTILLATION SITE PAIN [None]
